FAERS Safety Report 6655957-5 (Version None)
Quarter: 2010Q1

REPORT INFORMATION
  Report Type: 
  Country: None (occurrence: None)
  Receive Date: 20100329
  Receipt Date: 20100319
  Transmission Date: 20100710
  Serious: Yes (Other)
  Sender: FDA-Public Use
  Company Number: PHHY2010BR17291

PATIENT
  Sex: Female

DRUGS (6)
  1. DIOVAN [Suspect]
  2. GENTEAL [Concomitant]
  3. CARMELLOSE SODIUM [Concomitant]
  4. OSCAL-D [Concomitant]
     Indication: OSTEOPOROSIS
  5. RIVOTRIL [Concomitant]
     Indication: SLEEP DISORDER
  6. PATANOL [Concomitant]
     Indication: HYPERSENSITIVITY

REACTIONS (5)
  - CATARACT OPERATION [None]
  - EYE LASER SURGERY [None]
  - MACULAR HOLE [None]
  - SURGERY [None]
  - VISUAL ACUITY REDUCED [None]
